FAERS Safety Report 23213384 (Version 2)
Quarter: 2023Q4

REPORT INFORMATION
  Report Type: Report from Study
  Country: ES (occurrence: ES)
  Receive Date: 20231121
  Receipt Date: 20231123
  Transmission Date: 20240109
  Serious: Yes (Other)
  Sender: FDA-Public Use
  Company Number: ES-ABBVIE-5369684

PATIENT
  Sex: Female

DRUGS (4)
  1. CARBIDOPA\LEVODOPA [Suspect]
     Active Substance: CARBIDOPA\LEVODOPA
     Indication: Parkinson^s disease
     Route: 050
     Dates: start: 20221221
  2. CARBIDOPA\LEVODOPA [Suspect]
     Active Substance: CARBIDOPA\LEVODOPA
  3. LORAZEPAM [Concomitant]
     Active Substance: LORAZEPAM
     Indication: Hypertension
  4. ACETAMINOPHEN [Concomitant]
     Active Substance: ACETAMINOPHEN
     Indication: Pain
     Dates: start: 202310

REACTIONS (27)
  - Unevaluable event [Not Recovered/Not Resolved]
  - Blood pressure abnormal [Unknown]
  - Nocturia [Not Recovered/Not Resolved]
  - Insomnia [Unknown]
  - Eye disorder [Not Recovered/Not Resolved]
  - Eye pain [Not Recovered/Not Resolved]
  - Eye pain [Not Recovered/Not Resolved]
  - Eye disorder [Not Recovered/Not Resolved]
  - Blood pressure inadequately controlled [Unknown]
  - Headache [Not Recovered/Not Resolved]
  - Headache [Not Recovered/Not Resolved]
  - Decreased appetite [Not Recovered/Not Resolved]
  - Unevaluable event [Not Recovered/Not Resolved]
  - Dyspepsia [Not Recovered/Not Resolved]
  - Dyskinesia [Not Recovered/Not Resolved]
  - Hypertension [Unknown]
  - Emotional distress [Not Recovered/Not Resolved]
  - Initial insomnia [Unknown]
  - Abdominal pain lower [Unknown]
  - Abdominal pain lower [Not Recovered/Not Resolved]
  - Abdominal pain upper [Unknown]
  - Weight decreased [Not Recovered/Not Resolved]
  - Dysstasia [Unknown]
  - Abdominal pain lower [Not Recovered/Not Resolved]
  - Nocturia [Not Recovered/Not Resolved]
  - Dyspepsia [Not Recovered/Not Resolved]
  - Hypertension [Unknown]

NARRATIVE: CASE EVENT DATE: 20230101
